FAERS Safety Report 8493049 (Version 6)
Quarter: 2013Q1

REPORT INFORMATION
  Report Type: Spontaneous
  Country: FR (occurrence: FR)
  Receive Date: 20120404
  Receipt Date: 20130318
  Transmission Date: 20140127
  Serious: Yes (Hospitalization, Other)
  Sender: FDA-Public Use
  Company Number: PHHY2012FR027963

PATIENT
  Age: 58 Year
  Sex: Female

DRUGS (18)
  1. FEMARA [Suspect]
     Indication: BREAST CANCER
     Dosage: UNK UKN, UNK
     Route: 048
     Dates: start: 2009
  2. LEVOTHYROX [Concomitant]
     Indication: HYPOTHYROIDISM
  3. STILNOX [Concomitant]
  4. LEXOMIL [Concomitant]
  5. EFFEXOR [Concomitant]
  6. NOCTAMID [Concomitant]
     Dosage: UNK UKN, UNK
  7. FUROSEMIDE [Concomitant]
     Dosage: UNK UKN, UNK
  8. KALEORID [Concomitant]
     Dosage: UNK UKN, UNK
  9. ARIXTRA [Concomitant]
     Dosage: UNK UKN, UNK
  10. KARDEGIC [Concomitant]
     Dosage: UNK UKN, UNK
  11. MAGNESIUM [Concomitant]
     Indication: MUSCLE SPASMS
     Dosage: UNK UKN, UNK
  12. CARDENSIEL [Concomitant]
     Dosage: UNK UKN, UNK
  13. TRIATEC [Concomitant]
     Dosage: ONCE
  14. DIFFU K [Concomitant]
     Dosage: UNK UKN, UNK
  15. PREVISCAN [Concomitant]
     Dosage: UNK UKN, UNK
  16. THERALENE [Concomitant]
     Dosage: UNK UKN, UNK
  17. PARACETAMOL [Concomitant]
     Dosage: 1 G EVERY 6 HOURS UP TO 4 G DAILY
  18. BROMAZEPAM [Concomitant]
     Dosage: UNK UKN, UNK

REACTIONS (21)
  - Congestive cardiomyopathy [Unknown]
  - Sinus tachycardia [Unknown]
  - Blood pressure decreased [Unknown]
  - Cardiac output decreased [Unknown]
  - Acute pulmonary oedema [Unknown]
  - Ejection fraction decreased [Unknown]
  - Oedema peripheral [Unknown]
  - Crepitations [Recovered/Resolved]
  - Dyspnoea [Unknown]
  - Cardiac failure [Unknown]
  - Asthenia [Unknown]
  - Pulmonary hypertension [Unknown]
  - Cholecystitis [Unknown]
  - Hyperthyroidism [Unknown]
  - Blood thyroid stimulating hormone decreased [Unknown]
  - Gait disturbance [Unknown]
  - Pain [Unknown]
  - Drug intolerance [Unknown]
  - Fatigue [Unknown]
  - Weight decreased [Unknown]
  - Hypokinesia [Unknown]
